FAERS Safety Report 10095816 (Version 2)
Quarter: 2014Q2

REPORT INFORMATION
  Report Type: Spontaneous
  Country: US (occurrence: US)
  Receive Date: 20140422
  Receipt Date: 20140422
  Transmission Date: 20141212
  Serious: No
  Sender: FDA-Public Use
  Company Number: US-GILEAD-2013-0074298

PATIENT
  Sex: Female

DRUGS (2)
  1. LETAIRIS [Suspect]
     Indication: PULMONARY HYPERTENSION
     Dosage: 5 MG, QD
     Route: 048
     Dates: start: 20121016
  2. LETAIRIS [Suspect]
     Indication: EMBOLISM

REACTIONS (4)
  - Cough [Unknown]
  - Dyspnoea [Unknown]
  - Oedema [Unknown]
  - No therapeutic response [Unknown]
